FAERS Safety Report 15084497 (Version 1)
Quarter: 2018Q3

REPORT INFORMATION
  Report Type: Spontaneous
  Country: ES (occurrence: ES)
  Receive Date: 20180628
  Receipt Date: 20180628
  Transmission Date: 20181010
  Serious: Yes (Hospitalization)
  Sender: FDA-Public Use
  Company Number: ES-TEVA-2018-ES-914784

PATIENT
  Age: 66 Year
  Sex: Male

DRUGS (3)
  1. CLOTIAZEPAM (3027A) [Suspect]
     Active Substance: CLOTIAZEPAM
     Route: 065
     Dates: start: 20180501, end: 20180507
  2. TRAZODONA (3160A) [Suspect]
     Active Substance: TRAZODONE HYDROCHLORIDE
     Route: 065
     Dates: start: 20180501, end: 20180507
  3. QUETIAPINA (1136A) [Suspect]
     Active Substance: QUETIAPINE
     Route: 065
     Dates: start: 20180501, end: 20180507

REACTIONS (2)
  - Encephalopathy [Recovering/Resolving]
  - Poisoning [Recovering/Resolving]

NARRATIVE: CASE EVENT DATE: 20180507
